FAERS Safety Report 11428249 (Version 1)
Quarter: 2015Q3

REPORT INFORMATION
  Report Type: Spontaneous
  Country: US (occurrence: US)
  Receive Date: 20150828
  Receipt Date: 20150828
  Transmission Date: 20151125
  Serious: No
  Sender: FDA-Public Use
  Company Number: US-ROCHE-1179697

PATIENT
  Sex: Male

DRUGS (3)
  1. RIBASPHERE [Suspect]
     Active Substance: RIBAVIRIN
     Indication: CHRONIC HEPATITIS C
     Route: 048
     Dates: start: 20121219, end: 20130606
  2. PEGASYS [Suspect]
     Active Substance: PEGINTERFERON ALFA-2A
     Indication: CHRONIC HEPATITIS C
     Route: 058
     Dates: start: 20121219, end: 201306
  3. TELAPREVIR [Suspect]
     Active Substance: TELAPREVIR
     Indication: CHRONIC HEPATITIS C
     Route: 065
     Dates: start: 20121219, end: 20130312

REACTIONS (10)
  - Dry skin [Unknown]
  - Hair texture abnormal [Unknown]
  - Viral load undetectable [Unknown]
  - Dry mouth [Unknown]
  - Alopecia [Unknown]
  - Injection site erythema [Unknown]
  - Anorectal discomfort [Unknown]
  - Pressure of speech [Unknown]
  - Weight decreased [Unknown]
  - Decreased appetite [Unknown]
